FAERS Safety Report 5576195-3 (Version None)
Quarter: 2007Q4

REPORT INFORMATION
  Report Type: 
  Country: None (occurrence: None)
  Receive Date: 20071228
  Receipt Date: 20071219
  Transmission Date: 20080405
  Serious: Yes (Other)
  Sender: FDA-Public Use
  Company Number: US-ROCHE-537663

PATIENT
  Age: 50 Year
  Sex: Male

DRUGS (17)
  1. PEGASYS [Suspect]
     Indication: HEPATITIS C
     Dosage: THE PATIENT HAS BEEN TAKING PEGASYS FOR 3 WEEKS.
     Route: 065
  2. RIBAVIRIN [Suspect]
     Indication: HEPATITIS C
     Dosage: THE PATIENT HAS BEEN TAKING RIBAVIRN FOR 3 WEEKS
     Route: 065
  3. OXYCODONE HCL [Concomitant]
  4. OXYCONTIN [Concomitant]
  5. IMIPRAMINE [Concomitant]
  6. 1 CONCOMITANT DRUG [Concomitant]
     Dosage: DRUG NAME REPORTED AS DARVACIT
  7. CLONAZEPAM [Concomitant]
     Dosage: RECEIVED AT BED TIME
  8. TRAZODONE HCL [Concomitant]
     Dosage: DOSE: 1 TABLET AT BEDTIME
  9. PREVACID [Concomitant]
  10. CETIRIZINE HCL [Concomitant]
     Dosage: DRUG NAME REPORTED AS ZIRTEC
  11. LEXAPRO [Concomitant]
     Dosage: PATIENT RECEIVED 2 TABLETS DAILY
  12. TIZANIDINE HCL [Concomitant]
     Dosage: DOSE: 1 TAB 4 TIMES DAILY.
  13. XANAX [Concomitant]
     Dosage: DRUG: XANXAX DOSE: 1 TAB 3 TIMES DAILY
  14. REQUIP [Concomitant]
  15. ADVAIR DISKUS 100/50 [Concomitant]
     Dosage: DRUG: ADVAIR DISC
  16. NASONEX [Concomitant]
  17. SPIRIVA [Concomitant]
     Dosage: DRUG: SPIREVA

REACTIONS (1)
  - PULMONARY OEDEMA [None]
